FAERS Safety Report 9869838 (Version 2)
Quarter: 2014Q1

REPORT INFORMATION
  Report Type: Report from Study
  Country: US (occurrence: US)
  Receive Date: 20140205
  Receipt Date: 20140205
  Transmission Date: 20141002
  Serious: Yes (Life-Threatening, Hospitalization)
  Sender: FDA-Public Use
  Company Number: US-009507513-1308USA014809

PATIENT
  Age: 63 Year
  Sex: Male
  Weight: 81.81 kg

DRUGS (4)
  1. VORINOSTAT [Suspect]
     Indication: CHRONIC MYELOMONOCYTIC LEUKAEMIA
     Dosage: 300 MG PO BID ON DAYS 3-9, CYCLE=28 DAYS, CYCLE 4
     Route: 048
     Dates: start: 20131101, end: 20131107
  2. VORINOSTAT [Suspect]
     Dosage: 300 MG PO BID ON DAYS 3-9, CYCLE=28 DAYS, CYCLE 1
     Route: 048
     Dates: start: 20130815
  3. AZACITIDINE [Suspect]
     Indication: CHRONIC MYELOMONOCYTIC LEUKAEMIA
     Dosage: 75 MG/M2 SQ OR IV ON DAYS 1-7 OR 75 MG/M2 SQ OR IV ON DAYS 1-5 AND DAYS 8-9, CYCLE 4
     Route: 058
     Dates: start: 20131030, end: 20131105
  4. AZACITIDINE [Suspect]
     Dosage: 75 MG/M2 SQ OR IV ON DAYS 1-7 OR 75 MG/M2 SQ OR IV ON DAYS 1-5 AND DAYS 8-9, CYCLE 1
     Route: 058
     Dates: start: 20130813

REACTIONS (3)
  - Cholecystitis [Not Recovered/Not Resolved]
  - Platelet count decreased [Recovering/Resolving]
  - Angina pectoris [Recovering/Resolving]
